FAERS Safety Report 24727960 (Version 1)
Quarter: 2024Q4

REPORT INFORMATION
  Report Type: Spontaneous
  Country: JP (occurrence: JP)
  Receive Date: 20241212
  Receipt Date: 20241212
  Transmission Date: 20250114
  Serious: Yes (Other)
  Sender: LUNDBECK
  Company Number: JP-SA-2024SA321240

PATIENT

DRUGS (4)
  1. SABRIL [Suspect]
     Active Substance: VIGABATRIN
     Indication: Infantile spasms
     Dosage: 400/DAY
     Route: 048
     Dates: end: 20240612
  2. SABRIL [Suspect]
     Active Substance: VIGABATRIN
     Dosage: 525/DAY
     Route: 048
     Dates: start: 20240613, end: 20240820
  3. SABRIL [Suspect]
     Active Substance: VIGABATRIN
     Dosage: TAPERED
     Route: 048
     Dates: start: 20240821, end: 202410
  4. VALPROATE SODIUM [Concomitant]
     Active Substance: VALPROATE SODIUM
     Indication: Product used for unknown indication
     Dosage: UNK

REACTIONS (3)
  - Respiratory disorder [Recovered/Resolved]
  - Magnetic resonance imaging abnormal [Recovered/Resolved]
  - Retinogram abnormal [Unknown]

NARRATIVE: CASE EVENT DATE: 20240809
